FAERS Safety Report 5108976-4 (Version None)
Quarter: 2006Q3

REPORT INFORMATION
  Report Type: 
  Country: None (occurrence: None)
  Receive Date: 20060918
  Receipt Date: 20060829
  Transmission Date: 20061208
  Serious: Yes (Life-Threatening, Hospitalization, Other)
  Sender: FDA-Public Use
  Company Number: US200608006683

PATIENT
  Age: 66 Year
  Sex: Male

DRUGS (4)
  1. HUMALOG [Suspect]
     Indication: DIABETES MELLITUS
     Dates: start: 19900101, end: 20060501
  2. HUMULIN R [Suspect]
     Indication: DIABETES MELLITUS
     Dates: start: 20060501
  3. LANTUS [Concomitant]
  4. OXYGEN [Concomitant]

REACTIONS (9)
  - AMNESIA [None]
  - DIABETES MELLITUS INADEQUATE CONTROL [None]
  - NIGHT SWEATS [None]
  - PHARMACEUTICAL PRODUCT COMPLAINT [None]
  - PYREXIA [None]
  - RESPIRATORY ARREST [None]
  - SKIN GRAFT [None]
  - SKIN ULCER [None]
  - TOE AMPUTATION [None]
